FAERS Safety Report 8920681 (Version 2)
Quarter: 2013Q1

REPORT INFORMATION
  Report Type: Spontaneous
  Country: US (occurrence: US)
  Receive Date: 20121122
  Receipt Date: 20130122
  Transmission Date: 20140127
  Serious: Yes (Other)
  Sender: FDA-Public Use
  Company Number: US-ROCHE-1155831

PATIENT
  Sex: 0

DRUGS (1)
  1. AVASTIN [Suspect]
     Indication: PRODUCT USED FOR UNKNOWN INDICATION
     Route: 031
     Dates: start: 20121030

REACTIONS (3)
  - Inflammation [Unknown]
  - Product quality issue [Unknown]
  - Suspected transmission of an infectious agent via product [Unknown]
